FAERS Safety Report 17996603 (Version 2)
Quarter: 2020Q3

REPORT INFORMATION
  Report Type: Spontaneous
  Country: NL (occurrence: NL)
  Receive Date: 20200708
  Receipt Date: 20200813
  Transmission Date: 20201103
  Serious: Yes (Other)
  Sender: FDA-Public Use
  Company Number: NL-PFIZER INC-2020262864

PATIENT
  Age: 45 Year
  Sex: Female

DRUGS (2)
  1. MEKTOVI [Suspect]
     Active Substance: BINIMETINIB
     Indication: MALIGNANT MELANOMA
     Dosage: 45 MG, 2X/DAY
     Route: 048
     Dates: start: 20200313, end: 20200316
  2. BRAFTOVI [Suspect]
     Active Substance: ENCORAFENIB
     Indication: MALIGNANT MELANOMA
     Dosage: 450 MG, SINGLE
     Route: 048
     Dates: start: 20200313, end: 20200316

REACTIONS (1)
  - Retinitis [Recovered/Resolved]

NARRATIVE: CASE EVENT DATE: 20200316
